FAERS Safety Report 13136032 (Version 1)
Quarter: 2017Q1

REPORT INFORMATION
  Report Type: Spontaneous
  Country: AU (occurrence: AU)
  Receive Date: 20170120
  Receipt Date: 20170120
  Transmission Date: 20170428
  Serious: Yes (Hospitalization, Other)
  Sender: FDA-Public Use
  Company Number: AU-ABBVIE-17P-008-1848469-00

PATIENT

DRUGS (1)
  1. CREON [Suspect]
     Active Substance: PANCRELIPASE AMYLASE\PANCRELIPASE LIPASE\PANCRELIPASE PROTEASE
     Indication: CYSTIC FIBROSIS
     Dosage: 10,000
     Route: 065

REACTIONS (7)
  - Flatulence [Unknown]
  - Constipation [Unknown]
  - Drug ineffective [Unknown]
  - Distal intestinal obstruction syndrome [Unknown]
  - Diarrhoea [Unknown]
  - Steatorrhoea [Unknown]
  - Abdominal distension [Unknown]
